FAERS Safety Report 17372046 (Version 1)
Quarter: 2020Q1

REPORT INFORMATION
  Report Type: Spontaneous
  Country: US (occurrence: US)
  Receive Date: 20200205
  Receipt Date: 20200205
  Transmission Date: 20200409
  Serious: Yes (Life-Threatening, Hospitalization, Disabling, Congenital Anomaly, Other)
  Sender: FDA-Public Use
  Company Number: US-AKRON, INC.-2079860

PATIENT
  Age: 9 Month
  Sex: Male
  Weight: 2 kg

DRUGS (4)
  1. GABAPENTIN ORAL SOLUTION [Suspect]
     Active Substance: GABAPENTIN
  2. BUPRENORPHINE. [Suspect]
     Active Substance: BUPRENORPHINE
  3. BENZODIAZEPINES [Suspect]
     Active Substance: BENZODIAZEPINE
  4. HEROIN [Suspect]
     Active Substance: DIAMORPHINE

REACTIONS (23)
  - Feeding intolerance [Recovering/Resolving]
  - Drug withdrawal syndrome neonatal [Recovering/Resolving]
  - Ear deformity acquired [Unknown]
  - Withdrawal syndrome [Recovering/Resolving]
  - Blindness [Unknown]
  - Hypoxic-ischaemic encephalopathy [Recovering/Resolving]
  - Eyelid ptosis [Unknown]
  - Cerebral ventricle dilatation [Unknown]
  - Micrognathia [Unknown]
  - Congenital multiplex arthrogryposis [Unknown]
  - Foetal exposure during pregnancy [Unknown]
  - Joint hyperextension [Unknown]
  - Deafness bilateral [Unknown]
  - Palatal disorder [Unknown]
  - Vomiting [Recovering/Resolving]
  - Anorectal disorder [Unknown]
  - Cerebral disorder [Unknown]
  - Developmental hip dysplasia [Unknown]
  - Respiratory distress [Recovering/Resolving]
  - Drug interaction [Unknown]
  - Gastrooesophageal reflux disease [Unknown]
  - Sepsis [Recovering/Resolving]
  - Hydronephrosis [Recovering/Resolving]
